FAERS Safety Report 4363082-1 (Version None)
Quarter: 2004Q2

REPORT INFORMATION
  Report Type: 
  Country: None (occurrence: None)
  Receive Date: 20040517
  Receipt Date: 20040302
  Transmission Date: 20050107
  Serious: No
  Sender: FDA-Public Use
  Company Number: S04-USA-01766-01

PATIENT
  Age: 90 Year
  Sex: Female

DRUGS (5)
  1. NAMENDA [Suspect]
     Dosage: 10 MG BID PO
     Route: 048
     Dates: start: 20040220, end: 20040225
  2. NAMENDA [Suspect]
     Dosage: 15 MG QD PO
     Route: 048
     Dates: start: 20040226
  3. NAMENDA [Suspect]
     Dosage: 5 MG QD PO
     Route: 048
     Dates: start: 20040130, end: 20040205
  4. NAMENDA [Suspect]
     Dosage: 10 MG QD PO
     Route: 048
     Dates: start: 20040226, end: 20040212
  5. NAMENDA [Suspect]
     Dosage: 15 MG PO
     Route: 048
     Dates: start: 20040213, end: 20040219

REACTIONS (1)
  - LETHARGY [None]
